FAERS Safety Report 6027238-4 (Version None)
Quarter: 2009Q1

REPORT INFORMATION
  Report Type: 
  Country: None (occurrence: None)
  Receive Date: 20090105
  Receipt Date: 20081226
  Transmission Date: 20090719
  Serious: Yes (Hospitalization)
  Sender: FDA-Public Use
  Company Number: JP-ABBOTT-08P-087-0494644-00

PATIENT
  Age: 53 Year
  Sex: Female
  Weight: 51 kg

DRUGS (3)
  1. CLARITH TABLETS [Suspect]
     Indication: NASOPHARYNGITIS
     Route: 048
     Dates: start: 20060930, end: 20061006
  2. RIBALL [Interacting]
     Indication: HYPERURICAEMIA
     Route: 048
     Dates: start: 20060930, end: 20061006
  3. LOXONIN [Interacting]
     Indication: OROPHARYNGEAL PAIN
     Dosage: 60-120 MG
     Route: 048
     Dates: start: 20061017, end: 20061026

REACTIONS (2)
  - DRUG INTERACTION [None]
  - STEVENS-JOHNSON SYNDROME [None]
